FAERS Safety Report 8031006-1 (Version None)
Quarter: 2012Q1

REPORT INFORMATION
  Report Type: 
  Country: None (occurrence: None)
  Receive Date: 20120109
  Receipt Date: 20111230
  Transmission Date: 20120608
  Serious: Yes (Other)
  Sender: FDA-Public Use
  Company Number: US-BAYER-2010-004860

PATIENT
  Sex: Female

DRUGS (10)
  1. VALIUM [Concomitant]
  2. FINGOLIMOD HYDROCHLORIDE [Concomitant]
  3. LOVAZA [Concomitant]
  4. ZANAFLEX [Concomitant]
  5. CARBATROL [Concomitant]
  6. INTERFERON BETA-1B [Suspect]
     Indication: MULTIPLE SCLEROSIS
     Dosage: 0.25 MG, QOD
     Route: 058
     Dates: start: 20091012, end: 20101101
  7. BACLOFEN [Concomitant]
  8. INTERFERON BETA-1B [Suspect]
     Dosage: 0.25 MG, QOD
     Dates: start: 20101101
  9. TOPAMAX [Concomitant]
  10. ZETIA [Concomitant]

REACTIONS (3)
  - CYSTITIS [None]
  - INJECTION SITE ERYTHEMA [None]
  - INJECTION SITE DISCOLOURATION [None]
